FAERS Safety Report 6966816-2 (Version None)
Quarter: 2010Q3

REPORT INFORMATION
  Report Type: 
  Country: None (occurrence: None)
  Receive Date: 20100906
  Receipt Date: 20100823
  Transmission Date: 20110219
  Serious: Yes (Death, Other)
  Sender: FDA-Public Use
  Company Number: PHHY2010JP05868

PATIENT
  Sex: Female

DRUGS (5)
  1. TASIGNA [Suspect]
     Indication: CHRONIC MYELOID LEUKAEMIA
     Dosage: 800 MG, UNK
     Route: 048
     Dates: start: 20091212, end: 20091231
  2. GLEEVEC [Suspect]
     Dosage: 400 MG/DAY
  3. GLEEVEC [Suspect]
     Dosage: 400 MG/DAY
  4. LASIX [Concomitant]
     Dosage: 20 MG, UNK
     Route: 048
  5. ASPIRIN [Concomitant]
     Dosage: 100 MG, UNK

REACTIONS (7)
  - ASCITES [None]
  - BLOOD CREATINE PHOSPHOKINASE INCREASED [None]
  - CHRONIC MYELOID LEUKAEMIA [None]
  - DYSPHAGIA [None]
  - MUSCULOSKELETAL PAIN [None]
  - PLEURAL EFFUSION [None]
  - RENAL IMPAIRMENT [None]
